FAERS Safety Report 11349256 (Version 1)
Quarter: 2015Q3

REPORT INFORMATION
  Report Type: Spontaneous
  Country: US (occurrence: US)
  Receive Date: 20150807
  Receipt Date: 20150807
  Transmission Date: 20151125
  Serious: Yes (Death, Other)
  Sender: FDA-Public Use
  Company Number: US-GLENMARK GENERICS (EUROPE) LTD-2015GMK018665

PATIENT

DRUGS (3)
  1. PERMETHRIN. [Concomitant]
     Active Substance: PERMETHRIN
     Indication: RASH
     Dosage: UNK
     Dates: start: 20150723, end: 20150727
  2. TRIAMCINOLONE [Concomitant]
     Active Substance: TRIAMCINOLONE
     Indication: RASH
     Dosage: UNK
     Dates: start: 20150723, end: 20150727
  3. LEVOCETIRIZINE TABLETS [Suspect]
     Active Substance: LEVOCETIRIZINE
     Indication: RASH
     Dosage: 1 DF, OD
     Route: 048
     Dates: start: 20150723, end: 20150727

REACTIONS (2)
  - Completed suicide [Fatal]
  - Feeling abnormal [Unknown]

NARRATIVE: CASE EVENT DATE: 20150726
